FAERS Safety Report 21940866 (Version 3)
Quarter: 2023Q1

REPORT INFORMATION
  Report Type: Report from Study
  Country: US (occurrence: US)
  Receive Date: 20230202
  Receipt Date: 20230310
  Transmission Date: 20230417
  Serious: Yes (Other)
  Sender: FDA-Public Use
  Company Number: US-ABBVIE-22K-163-4536104-00

PATIENT
  Sex: Female

DRUGS (7)
  1. HUMIRA [Suspect]
     Active Substance: ADALIMUMAB
     Indication: Psoriasis
     Dosage: START DATE TEXT: -OCT-2022 OR -NOV-2022, FORM STRENGTH: 40 MILLIGRAM
     Route: 058
     Dates: start: 2021
  2. HUMIRA [Suspect]
     Active Substance: ADALIMUMAB
     Indication: Hidradenitis
     Dosage: FORM STRENGTH: 40 MILLIGRAM
     Route: 058
  3. HUMIRA [Suspect]
     Active Substance: ADALIMUMAB
     Indication: Colitis ulcerative
     Dosage: FORM STRENGTH: 40 MILLIGRAM
     Route: 058
  4. LASIX [Concomitant]
     Active Substance: FUROSEMIDE
     Indication: Cardiac failure congestive
  5. MODERNA COVID-19 VACCINE [Concomitant]
     Active Substance: ELASOMERAN
     Indication: COVID-19 immunisation
     Dosage: COVID VACCINE DOSE
     Route: 030
  6. MODERNA COVID-19 VACCINE [Concomitant]
     Active Substance: ELASOMERAN
     Indication: COVID-19 immunisation
     Dosage: COVID BOOSTER VACCINE DOSE
     Route: 030
  7. METFORMIN [Concomitant]
     Active Substance: METFORMIN HYDROCHLORIDE
     Indication: Diabetes mellitus

REACTIONS (16)
  - Uterine haemorrhage [Recovered/Resolved]
  - Muscle spasms [Not Recovered/Not Resolved]
  - Sleep apnoea syndrome [Unknown]
  - Malaise [Unknown]
  - Heavy menstrual bleeding [Not Recovered/Not Resolved]
  - Endometrial hyperplasia [Not Recovered/Not Resolved]
  - Migraine [Unknown]
  - Headache [Not Recovered/Not Resolved]
  - Pain [Unknown]
  - Nausea [Unknown]
  - Oophorectomy [Unknown]
  - Discomfort [Unknown]
  - Back disorder [Unknown]
  - Ovarian disorder [Unknown]
  - Intentional product misuse [Unknown]
  - Product storage error [Unknown]

NARRATIVE: CASE EVENT DATE: 20220101
